FAERS Safety Report 13771207 (Version 1)
Quarter: 2017Q3

REPORT INFORMATION
  Report Type: Report from Study
  Country: US (occurrence: US)
  Receive Date: 20170720
  Receipt Date: 20170720
  Transmission Date: 20171127
  Serious: No
  Sender: FDA-Public Use
  Company Number: PHEH2017US022294

PATIENT

DRUGS (1)
  1. ILARIS [Suspect]
     Active Substance: CANAKINUMAB
     Indication: CARCINOID SYNDROME
     Dosage: 20 MG, EVERY 28 DAYS
     Route: 030

REACTIONS (2)
  - Inappropriate schedule of drug administration [Unknown]
  - Product use in unapproved indication [Unknown]
